FAERS Safety Report 12983225 (Version 1)
Quarter: 2016Q4

REPORT INFORMATION
  Report Type: Report from Study
  Country: DE (occurrence: DE)
  Receive Date: 20161129
  Receipt Date: 20161129
  Transmission Date: 20170207
  Serious: Yes (Other)
  Sender: FDA-Public Use
  Company Number: PHHO2016DE017190

PATIENT
  Age: 47 Year
  Sex: Male

DRUGS (1)
  1. LDK378 [Suspect]
     Active Substance: CERITINIB
     Indication: LUNG NEOPLASM MALIGNANT
     Dosage: UNK
     Route: 048
     Dates: start: 201304

REACTIONS (1)
  - Metastases to central nervous system [Unknown]
